FAERS Safety Report 6156433-9 (Version None)
Quarter: 2009Q2

REPORT INFORMATION
  Report Type: 
  Country: None (occurrence: None)
  Receive Date: 20090416
  Receipt Date: 20090414
  Transmission Date: 20091009
  Serious: Yes (Hospitalization)
  Sender: FDA-Public Use
  Company Number: DE-JNJFOC-20081206795

PATIENT
  Age: 49 Year
  Sex: Male
  Weight: 92 kg

DRUGS (3)
  1. RISPERDAL CONSTA [Suspect]
     Route: 030
  2. RISPERDAL CONSTA [Suspect]
     Indication: SCHIZOPHRENIA, PARANOID TYPE
     Route: 030
  3. SERTRALINE [Concomitant]
     Indication: DEPRESSION
     Route: 048

REACTIONS (2)
  - AUTISM [None]
  - SCHIZOPHRENIA, PARANOID TYPE [None]
